FAERS Safety Report 20198007 (Version 1)
Quarter: 2021Q4

REPORT INFORMATION
  Report Type: Spontaneous
  Country: US (occurrence: US)
  Receive Date: 20211217
  Receipt Date: 20211217
  Transmission Date: 20220303
  Serious: No
  Sender: FDA-Public Use
  Company Number: US-ALLERGAN-2112280US

PATIENT
  Age: 60 Year
  Sex: Male

DRUGS (3)
  1. PREDNISOLONE ACETATE [Suspect]
     Active Substance: PREDNISOLONE ACETATE
     Indication: Corneal oedema
     Dosage: 2 GTT, QID
     Route: 047
     Dates: start: 20210312
  2. KETOROLAC [Concomitant]
     Active Substance: KETOROLAC TROMETHAMINE
     Indication: Corneal oedema
     Route: 047
  3. OFLOXACIN [Concomitant]
     Active Substance: OFLOXACIN
     Route: 047

REACTIONS (2)
  - Product storage error [Unknown]
  - Liquid product physical issue [Unknown]
